FAERS Safety Report 17743951 (Version 1)
Quarter: 2020Q2

REPORT INFORMATION
  Report Type: Spontaneous
  Country: FR (occurrence: FR)
  Receive Date: 20200505
  Receipt Date: 20200505
  Transmission Date: 20200714
  Serious: Yes (Death, Hospitalization)
  Sender: FDA-Public Use
  Company Number: FR-TEVA-2020-FR-1231151

PATIENT
  Age: 52 Year
  Sex: Female

DRUGS (3)
  1. NIVOLUMAB [Suspect]
     Active Substance: NIVOLUMAB
     Indication: LUNG CANCER METASTATIC
     Dosage: 4 INJECTIONS
     Route: 065
  2. PREDNISOLONE. [Suspect]
     Active Substance: PREDNISOLONE
     Indication: CARDIOGENIC SHOCK
     Dosage: HIGH DOSES
     Route: 065
  3. ANTITHYMOCYTE GLOBULIN [Suspect]
     Active Substance: THYMOCYTE IMMUNE GLOBULIN NOS
     Indication: CARDIOGENIC SHOCK
     Route: 065

REACTIONS (4)
  - Drug ineffective [Unknown]
  - Cardiogenic shock [Fatal]
  - Acute coronary syndrome [Recovered/Resolved]
  - Pneumonia [Unknown]
